FAERS Safety Report 9783804 (Version 1)
Quarter: 2013Q4

REPORT INFORMATION
  Report Type: Spontaneous
  Country: US (occurrence: US)
  Receive Date: 20131226
  Receipt Date: 20131226
  Transmission Date: 20140711
  Serious: No
  Sender: FDA-Public Use
  Company Number: US-PFIZER INC-2013366143

PATIENT
  Sex: Female

DRUGS (2)
  1. CALAN SR [Suspect]
     Dosage: 180 MG, UNK
  2. CALAN SR [Suspect]
     Dosage: 240 MG, UNK

REACTIONS (4)
  - Constipation [Unknown]
  - Drug intolerance [Unknown]
  - Throat irritation [Unknown]
  - Therapeutic response unexpected [Unknown]
